FAERS Safety Report 8091671-X (Version None)
Quarter: 2012Q1

REPORT INFORMATION
  Report Type: 
  Country: None (occurrence: None)
  Receive Date: 20120129
  Receipt Date: 20110908
  Transmission Date: 20120608
  Serious: No
  Sender: FDA-Public Use
  Company Number: US-ABBOTT-11P-163-0853898-00

PATIENT
  Sex: Female

DRUGS (4)
  1. MULTI-VITAMINS [Concomitant]
     Indication: PREGNANCY
  2. IMODIUM [Concomitant]
     Indication: DIARRHOEA
  3. IMODIUM [Concomitant]
     Indication: CROHN'S DISEASE
  4. HUMIRA [Suspect]
     Indication: CROHN'S DISEASE
     Route: 058
     Dates: start: 20110501

REACTIONS (6)
  - INJECTION SITE ABSCESS [None]
  - INJECTION SITE HAEMATOMA [None]
  - PROTEIN URINE [None]
  - INJECTION SITE HAEMORRHAGE [None]
  - URINE KETONE BODY [None]
  - WRONG TECHNIQUE IN DRUG USAGE PROCESS [None]
